FAERS Safety Report 9109088 (Version 1)
Quarter: 2013Q1

REPORT INFORMATION
  Report Type: Spontaneous
  Country: ES (occurrence: ES)
  Receive Date: 20130222
  Receipt Date: 20130222
  Transmission Date: 20140127
  Serious: Yes (Hospitalization)
  Sender: FDA-Public Use
  Company Number: ES-ABBOTT-13P-144-1039517-00

PATIENT
  Sex: 0
  Weight: 77 kg

DRUGS (3)
  1. HUMIRA [Suspect]
     Indication: ANKYLOSING SPONDYLITIS
     Route: 058
     Dates: start: 200709
  2. INDOMETACIN [Concomitant]
     Indication: PAIN
     Route: 048
     Dates: start: 201210
  3. OMEPRAZOLE [Concomitant]
     Indication: PRODUCT USED FOR UNKNOWN INDICATION
     Route: 048

REACTIONS (6)
  - Renal colic [Recovered/Resolved]
  - Blood uric acid increased [Unknown]
  - Pollakiuria [Recovered/Resolved]
  - Dysuria [Recovered/Resolved]
  - Calculus ureteric [Recovered/Resolved]
  - Nephrolithiasis [Recovered/Resolved]
